FAERS Safety Report 14587483 (Version 1)
Quarter: 2018Q1

REPORT INFORMATION
  Report Type: Spontaneous
  Country: US (occurrence: US)
  Receive Date: 20180301
  Receipt Date: 20180301
  Transmission Date: 20180509
  Serious: Yes (Life-Threatening)
  Sender: FDA-Public Use
  Company Number: None

PATIENT
  Age: 42 Year
  Sex: Female
  Weight: 108 kg

DRUGS (8)
  1. VITAMIN B12 [Concomitant]
     Active Substance: CYANOCOBALAMIN
  2. ZONISIMIDE 100MG [Suspect]
     Active Substance: ZONISAMIDE
     Indication: EPILEPSY
     Dosage: QUANTITY:4 CAPSULE(S); AT BEDTIME?
     Route: 048
     Dates: start: 20180120, end: 20180211
  3. PROZAC [Concomitant]
     Active Substance: FLUOXETINE HYDROCHLORIDE
  4. PROPRANOLOL [Concomitant]
     Active Substance: PROPRANOLOL HYDROCHLORIDE
  5. KLONOPIN [Concomitant]
     Active Substance: CLONAZEPAM
  6. AMBIEN [Concomitant]
     Active Substance: ZOLPIDEM TARTRATE
  7. VYVANSE [Concomitant]
     Active Substance: LISDEXAMFETAMINE DIMESYLATE
  8. TIZANIDINE. [Concomitant]
     Active Substance: TIZANIDINE

REACTIONS (15)
  - Hypersomnia [None]
  - Dizziness [None]
  - Crying [None]
  - Conjunctivitis [None]
  - Diplopia [None]
  - Anxiety [None]
  - Hypotension [None]
  - Suicidal ideation [None]
  - Asthenia [None]
  - Dysarthria [None]
  - Depression [None]
  - Insomnia [None]
  - Flank pain [None]
  - Acute kidney injury [None]
  - Headache [None]

NARRATIVE: CASE EVENT DATE: 20180129
